FAERS Safety Report 17389490 (Version 1)
Quarter: 2020Q1

REPORT INFORMATION
  Report Type: Report from Study
  Country: None (occurrence: US)
  Receive Date: 20200207
  Receipt Date: 20200207
  Transmission Date: 20200409
  Serious: Yes (Other)
  Sender: FDA-Public Use
  Company Number: US-ABBVIE-19K-163-3211548-00

PATIENT
  Age: 60 Year
  Sex: Female

DRUGS (2)
  1. HUMIRA [Suspect]
     Active Substance: ADALIMUMAB
     Indication: RHEUMATOID ARTHRITIS
     Route: 058
     Dates: start: 202001
  2. HUMIRA [Suspect]
     Active Substance: ADALIMUMAB
     Indication: PRODUCT USED FOR UNKNOWN INDICATION
     Route: 058
     Dates: start: 2004

REACTIONS (21)
  - Loss of personal independence in daily activities [Unknown]
  - Injection site rash [Unknown]
  - Pain in extremity [Recovering/Resolving]
  - Joint stiffness [Unknown]
  - Foot deformity [Unknown]
  - Headache [Unknown]
  - Pain [Unknown]
  - Musculoskeletal disorder [Unknown]
  - Joint swelling [Unknown]
  - Skin disorder [Unknown]
  - Skin infection [Unknown]
  - Nasopharyngitis [Recovered/Resolved]
  - Pallor [Unknown]
  - Suicidal ideation [Unknown]
  - Depression [Unknown]
  - Dermatitis atopic [Unknown]
  - Injection site erythema [Unknown]
  - Injection site pruritus [Unknown]
  - Arthralgia [Unknown]
  - Fatigue [Unknown]
  - Peripheral swelling [Unknown]

NARRATIVE: CASE EVENT DATE: 202001
